FAERS Safety Report 11199396 (Version 3)
Quarter: 2015Q3

REPORT INFORMATION
  Report Type: Spontaneous
  Country: US (occurrence: US)
  Receive Date: 20150618
  Receipt Date: 20150728
  Transmission Date: 20151125
  Serious: Yes (Other)
  Sender: FDA-Public Use
  Company Number: US-BAYER-2015-328532

PATIENT
  Age: 32 Year
  Sex: Female

DRUGS (1)
  1. SKYLA [Suspect]
     Active Substance: LEVONORGESTREL
     Indication: CONTRACEPTION
     Dosage: 14 MCG/24HR, CONT
     Route: 015
     Dates: start: 20150527, end: 20150708

REACTIONS (12)
  - Myalgia [Recovered/Resolved]
  - Uterine haemorrhage [Recovered/Resolved]
  - Genital haemorrhage [Recovered/Resolved]
  - Asthenia [Recovered/Resolved]
  - Post procedural haemorrhage [Recovered/Resolved]
  - Impaired work ability [Not Recovered/Not Resolved]
  - Abdominal pain lower [None]
  - Back pain [None]
  - Vulvovaginal pain [None]
  - Breast tenderness [None]
  - Weight increased [None]
  - Lethargy [Recovered/Resolved]

NARRATIVE: CASE EVENT DATE: 2015
